FAERS Safety Report 5521953-4 (Version None)
Quarter: 2007Q4

REPORT INFORMATION
  Report Type: 
  Country: None (occurrence: None)
  Receive Date: 20071120
  Receipt Date: 20070423
  Transmission Date: 20080405
  Serious: No
  Sender: FDA-Public Use
  Company Number: US-BRISTOL-MYERS SQUIBB COMPANY-13759295

PATIENT
  Age: 85 Year
  Sex: Male

DRUGS (7)
  1. AVALIDE [Suspect]
     Indication: BLOOD PRESSURE
     Route: 048
  2. TOPROL-XL [Concomitant]
  3. FLOMAX [Concomitant]
  4. CASODEX [Concomitant]
  5. CELEBREX [Concomitant]
  6. ALLEGRA [Concomitant]
  7. LASIX [Concomitant]

REACTIONS (1)
  - ORAL PAIN [None]
